FAERS Safety Report 24790317 (Version 4)
Quarter: 2025Q1

REPORT INFORMATION
  Report Type: Spontaneous
  Country: JP (occurrence: JP)
  Receive Date: 20241230
  Receipt Date: 20250218
  Transmission Date: 20250408
  Serious: Yes (Hospitalization)
  Sender: EISAI
  Company Number: JP-Eisai-202412158_LEN-EC_P_1

PATIENT
  Age: 82 Year
  Sex: Female

DRUGS (3)
  1. LENVIMA [Suspect]
     Active Substance: LENVATINIB
     Indication: Endometrial cancer
     Dates: start: 20241203, end: 2024
  2. LENVIMA [Suspect]
     Active Substance: LENVATINIB
  3. KEYTRUDA [Suspect]
     Active Substance: PEMBROLIZUMAB
     Indication: Endometrial cancer
     Dates: start: 20241203, end: 2024

REACTIONS (4)
  - Dehydration [Unknown]
  - Hypercalcaemia [Recovered/Resolved]
  - Adrenal disorder [Recovering/Resolving]
  - Parathyroid disorder [Recovering/Resolving]

NARRATIVE: CASE EVENT DATE: 20240101
